FAERS Safety Report 20964192 (Version 2)
Quarter: 2022Q2

REPORT INFORMATION
  Report Type: Spontaneous
  Country: US (occurrence: US)
  Receive Date: 20220615
  Receipt Date: 20220615
  Transmission Date: 20220721
  Serious: Yes (Hospitalization, Other)
  Sender: FDA-Public Use
  Company Number: US-PFIZER INC-202200820472

PATIENT
  Age: 21 Year
  Sex: Female

DRUGS (4)
  1. METHOTREXATE SODIUM [Suspect]
     Active Substance: METHOTREXATE SODIUM
     Indication: Fibrosarcoma
     Dosage: 9.7 G/M2, INITIAL FOUR DOSES (RECEIVED 12 MTX-LV TREATMENTS OVER 15 WEEKS.)
     Route: 042
  2. METHOTREXATE SODIUM [Suspect]
     Active Substance: METHOTREXATE SODIUM
     Dosage: 12.4 G/M2, GRADUALLY ESCALATED, SIXTH TREATMENT (RECEIVED 12 MTX-LV TREATMENTS OVER 15 WEEKS.)
     Route: 042
  3. LEUCOVORIN CALCIUM [Concomitant]
     Active Substance: LEUCOVORIN CALCIUM
     Indication: Fibrosarcoma
     Dosage: 9.7 G/M2, INITIAL FOUR DOSES (RECEIVED 12 MTX-LV TREATMENTS OVER 15 WEEKS.)
  4. LEUCOVORIN CALCIUM [Concomitant]
     Active Substance: LEUCOVORIN CALCIUM
     Dosage: 12.4 G/M2, GRADUALLY ESCALATED, SIXTH TREATMENT (RECEIVED 12 MTX-LV TREATMENTS OVER 15 WEEKS.)

REACTIONS (3)
  - Neurotoxicity [Unknown]
  - Leukoencephalopathy [Unknown]
  - Drug ineffective [Unknown]
